FAERS Safety Report 9199693 (Version 1)
Quarter: 2013Q1

REPORT INFORMATION
  Report Type: Spontaneous
  Country: US (occurrence: None)
  Receive Date: 20130326
  Receipt Date: 20130326
  Transmission Date: 20140127
  Serious: Yes (Other)
  Sender: FDA-Public Use
  Company Number: SYM-2013-01833

PATIENT
  Age: 66 Year
  Sex: Female

DRUGS (1)
  1. XENAZINE (TETRABENAZINE) (TABLETS) (TETRABENAZINE) [Suspect]
     Indication: BASAL GANGLION DEGENERATION
     Route: 048
     Dates: start: 20120821, end: 20130204

REACTIONS (2)
  - Balance disorder [None]
  - Feeling abnormal [None]
